FAERS Safety Report 8202022-1 (Version None)
Quarter: 2012Q1

REPORT INFORMATION
  Report Type: 
  Country: None (occurrence: None)
  Receive Date: 20120312
  Receipt Date: 20120301
  Transmission Date: 20120608
  Serious: Yes (Other)
  Sender: FDA-Public Use
  Company Number: US-MERCK-1202USA00341

PATIENT
  Age: 78 Year
  Sex: Female
  Weight: 58 kg

DRUGS (6)
  1. GABAPENTIN [Concomitant]
     Route: 048
  2. HYDROXYCHLOROQUINE SULFATE [Concomitant]
     Indication: RHEUMATOID ARTHRITIS
     Route: 065
  3. DIOVAN [Concomitant]
     Indication: HYPERTENSION
     Route: 048
  4. FOSAMAX PLUS D [Suspect]
     Indication: OSTEOPOROSIS
     Route: 048
     Dates: start: 19960101, end: 20091101
  5. DELTACORTONE [Concomitant]
     Indication: RHEUMATOID ARTHRITIS
     Route: 048
  6. ZYRTEC [Concomitant]
     Indication: HYPERSENSITIVITY
     Route: 048

REACTIONS (1)
  - FEMUR FRACTURE [None]
